FAERS Safety Report 21496216 (Version 1)
Quarter: 2022Q4

REPORT INFORMATION
  Report Type: Spontaneous
  Country: US (occurrence: US)
  Receive Date: 20221022
  Receipt Date: 20221022
  Transmission Date: 20230113
  Serious: No
  Sender: FDA-Public Use
  Company Number: US-NOVARTISTESTPH-NVSC2022US238632

PATIENT
  Age: 53 Year
  Sex: Female
  Weight: 72.57 kg

DRUGS (2)
  1. LEQVIO [Suspect]
     Active Substance: INCLISIRAN SODIUM
     Indication: Low density lipoprotein decreased
     Dosage: 284 MG, OTHER, INITIAL DOSE AT 3 MONTHS AND 6 MONTHS AFTER
     Route: 058
     Dates: start: 20221013
  2. LEQVIO [Suspect]
     Active Substance: INCLISIRAN SODIUM
     Dosage: 284 MG, OTHER
     Route: 058
     Dates: start: 20221018

REACTIONS (4)
  - Pruritus [Recovering/Resolving]
  - Palpitations [Recovered/Resolved]
  - Injection site discomfort [Recovering/Resolving]
  - Injection site pruritus [Unknown]

NARRATIVE: CASE EVENT DATE: 20221013
